FAERS Safety Report 16411104 (Version 1)
Quarter: 2019Q3

REPORT INFORMATION
  Report Type: Spontaneous
  Country: US (occurrence: US)
  Receive Date: 20190609
  Receipt Date: 20190609
  Transmission Date: 20191004
  Serious: Yes (Disabling, Other)
  Sender: FDA-Public Use
  Company Number: None

PATIENT
  Age: 65 Year
  Sex: Male
  Weight: 69.75 kg

DRUGS (1)
  1. DOXYCYCLINE HYCLATE NDC 42806-0312-50 [Suspect]
     Active Substance: DOXYCYCLINE HYCLATE
     Indication: RASH
     Dosage: ?          QUANTITY:28 TABLET(S);?
     Route: 048
     Dates: start: 20190414, end: 20190428

REACTIONS (7)
  - Asthenia [None]
  - Dyspnoea [None]
  - Depression [None]
  - Eye disorder [None]
  - Constipation [None]
  - Dizziness [None]
  - Motion sickness [None]

NARRATIVE: CASE EVENT DATE: 20190415
